FAERS Safety Report 14060527 (Version 5)
Quarter: 2018Q3

REPORT INFORMATION
  Report Type: Report from Study
  Country: None (occurrence: US)
  Receive Date: 20171006
  Receipt Date: 20180704
  Transmission Date: 20181010
  Serious: Yes (Other)
  Sender: FDA-Public Use
  Company Number: US-ABBVIE-17K-163-2024630-00

PATIENT
  Sex: Male

DRUGS (2)
  1. HUMIRA [Suspect]
     Active Substance: ADALIMUMAB
     Indication: RHEUMATOID ARTHRITIS
     Route: 058
     Dates: start: 20170626, end: 201708
  2. HUMIRA [Suspect]
     Active Substance: ADALIMUMAB
     Dosage: DOSE SCHEDULED ON 18?8?2017 BUT ADMINISTERED ON 21?8?2017.
     Route: 058
     Dates: start: 20170821

REACTIONS (21)
  - Balance disorder [Not Recovered/Not Resolved]
  - Musculoskeletal stiffness [Unknown]
  - Muscle spasms [Not Recovered/Not Resolved]
  - Dyspnoea [Not Recovered/Not Resolved]
  - Road traffic accident [Unknown]
  - Lung disorder [Unknown]
  - Arthralgia [Not Recovered/Not Resolved]
  - Sensitivity to weather change [Not Recovered/Not Resolved]
  - Pain in extremity [Unknown]
  - Fatigue [Unknown]
  - Tremor [Unknown]
  - Neck pain [Unknown]
  - Thrombosis mesenteric vessel [Unknown]
  - Gait disturbance [Recovering/Resolving]
  - Back pain [Recovering/Resolving]
  - Loss of personal independence in daily activities [Unknown]
  - Asthenia [Unknown]
  - Joint swelling [Not Recovered/Not Resolved]
  - Fall [Unknown]
  - Injection site pain [Unknown]
  - Neck pain [Unknown]

NARRATIVE: CASE EVENT DATE: 2017
